FAERS Safety Report 6052000-6 (Version None)
Quarter: 2009Q1

REPORT INFORMATION
  Report Type: 
  Country: None (occurrence: None)
  Receive Date: 20090126
  Receipt Date: 20090115
  Transmission Date: 20090719
  Serious: Yes (Hospitalization, Other)
  Sender: FDA-Public Use
  Company Number: FR-WYE-H07824009

PATIENT
  Sex: Male

DRUGS (10)
  1. CORDARONE [Suspect]
     Indication: CARDIAC FAILURE
     Route: 048
     Dates: start: 20080725, end: 20081011
  2. CORDARONE [Interacting]
     Indication: ATRIAL FIBRILLATION
     Route: 048
     Dates: start: 20081012, end: 20081031
  3. CORDARONE [Interacting]
     Route: 048
     Dates: start: 20081101, end: 20081110
  4. SANDIMMUNE [Interacting]
     Dosage: 100 MG/ML
     Route: 042
     Dates: start: 20081031
  5. SOLUPRED [Concomitant]
     Route: 048
  6. OMEPRAZOLE [Concomitant]
  7. HEMIGOXINE NATIVELLE [Concomitant]
     Dosage: UNSPECIFIED
     Route: 048
  8. PREVISCAN [Concomitant]
     Dosage: UNSPECIFIED
     Route: 048
  9. NOXAFIL [Interacting]
     Route: 048
     Dates: start: 20081023, end: 20081031
  10. LASILIX [Concomitant]

REACTIONS (6)
  - DELIRIUM [None]
  - DRUG INEFFECTIVE [None]
  - DRUG INTERACTION [None]
  - MESENTERIC VEIN THROMBOSIS [None]
  - NON-HODGKIN'S LYMPHOMA RECURRENT [None]
  - PSYCHOTIC DISORDER [None]
